FAERS Safety Report 21746493 (Version 1)
Quarter: 2022Q4

REPORT INFORMATION
  Report Type: Spontaneous
  Country: US (occurrence: None)
  Receive Date: 20221216
  Receipt Date: 20221216
  Transmission Date: 20230112
  Serious: No
  Sender: FDA-Public Use
  Company Number: None

PATIENT
  Age: 40 Year
  Sex: Female

DRUGS (1)
  1. TALTZ [Suspect]
     Active Substance: IXEKIZUMAB
     Indication: Psoriasis
     Dosage: FREQUENCY : AS DIRECTED;?1 INJECT 8OMG (1 PEN) SUBCUTANEOUSLY AT WEEK 12 THEN?EVERY 4 WEEKS AS DIREC
     Route: 058
     Dates: start: 202211

REACTIONS (2)
  - Herpes zoster [None]
  - Condition aggravated [None]
